FAERS Safety Report 26108735 (Version 1)
Quarter: 2025Q4

REPORT INFORMATION
  Report Type: Spontaneous
  Country: US (occurrence: None)
  Receive Date: 20251128
  Receipt Date: 20251128
  Transmission Date: 20260118
  Serious: Yes (Disabling, Other)
  Sender: FDA-CTU
  Company Number: None

PATIENT
  Age: 59 Year
  Sex: Female
  Weight: 131.85 kg

DRUGS (23)
  1. AZELASTINE HYDROCHLORIDE [Suspect]
     Active Substance: AZELASTINE HYDROCHLORIDE
     Indication: Sinus congestion
     Dosage: 2 SPRAY(S) TWICE A DAY RESPIRATORY (INHALATION)?
     Route: 055
  2. BUPROPION [Suspect]
     Active Substance: BUPROPION
  3. MELOXICAM [Concomitant]
     Active Substance: MELOXICAM
  4. SERTRALINE [Concomitant]
     Active Substance: SERTRALINE HYDROCHLORIDE
  5. OMEPRAZOLE [Concomitant]
     Active Substance: OMEPRAZOLE
  6. Lisinopril HCTZ 20?25 mg [Concomitant]
  7. METOPROLOL SUCCINATE [Concomitant]
     Active Substance: METOPROLOL SUCCINATE
  8. Bupropion HCLXL 150 mg [Concomitant]
  9. Bupropion HCLXL 300 mg [Concomitant]
  10. Estradiol .5 mg progesterone [Concomitant]
  11. micro 100 mg PRN [Concomitant]
  12. Alprazolam 2 mg half to one tab [Concomitant]
  13. TIZANIDINE [Concomitant]
     Active Substance: TIZANIDINE
  14. Melatonin 5 mg [Concomitant]
  15. PROBIOTICS NOS [Concomitant]
     Active Substance: PROBIOTICS NOS
  16. Align Gentle laxative [Concomitant]
  17. Dulcolax Hair [Concomitant]
  18. skin and nails softgels Glucosamine/chondroitin [Concomitant]
  19. Osteo Bi-Flex triple strength Natures bounty turmeric [Concomitant]
  20. 1000 mg plus black pepper extract [Concomitant]
  21. Nature made D3 1000 international units [Concomitant]
  22. VITAMIN C [Concomitant]
     Active Substance: ASCORBIC ACID
  23. EXCEDRIN MIGRAINE [Concomitant]
     Active Substance: ACETAMINOPHEN\ASPIRIN\CAFFEINE

REACTIONS (11)
  - Product taste abnormal [None]
  - Nausea [None]
  - Retching [None]
  - Abdominal discomfort [None]
  - Disorientation [None]
  - Dizziness [None]
  - Feeling abnormal [None]
  - Anger [None]
  - Crying [None]
  - Emotional distress [None]
  - Contraindicated product administered [None]

NARRATIVE: CASE EVENT DATE: 20251120
